APPROVED DRUG PRODUCT: DICYCLOMINE HYDROCHLORIDE
Active Ingredient: DICYCLOMINE HYDROCHLORIDE
Strength: 10MG/ML
Dosage Form/Route: INJECTABLE;INJECTION
Application: A210979 | Product #001 | TE Code: AP
Applicant: FOSUN PHARMA USA INC
Approved: Jul 2, 2018 | RLD: No | RS: Yes | Type: RX